FAERS Safety Report 6409484-0 (Version None)
Quarter: 2009Q4

REPORT INFORMATION
  Report Type: 
  Country: None (occurrence: None)
  Receive Date: 20091016
  Receipt Date: 20091005
  Transmission Date: 20100525
  Serious: Yes (Hospitalization)
  Sender: FDA-Public Use
  Company Number: KV200900781

PATIENT
  Age: 27 Year
  Sex: Female

DRUGS (1)
  1. CLINDESSE [Suspect]
     Indication: VAGINITIS BACTERIAL
     Dosage: 2 G, SINGLE, VAGINAL
     Route: 067
     Dates: start: 20080905, end: 20080905

REACTIONS (4)
  - COELIAC DISEASE [None]
  - COLITIS ULCERATIVE [None]
  - MALNUTRITION [None]
  - NO THERAPEUTIC RESPONSE [None]
